FAERS Safety Report 5029227-5 (Version None)
Quarter: 2006Q2

REPORT INFORMATION
  Report Type: 
  Country: None (occurrence: None)
  Receive Date: 20060616
  Receipt Date: 20060616
  Transmission Date: 20061013
  Serious: Yes (Hospitalization, Disabling)
  Sender: FDA-Public Use
  Company Number: None

PATIENT
  Age: 50 Year
  Sex: Male
  Weight: 103 kg

DRUGS (5)
  1. METHADONE HCL [Suspect]
     Indication: DRUG WITHDRAWAL MAINTENANCE THERAPY
     Dosage: 150MG   QD   PO
     Route: 048
     Dates: start: 20050412, end: 20060606
  2. BACLOFEN [Suspect]
     Indication: MUSCLE SPASMS
     Dosage: 20MG   QID   PO
     Route: 048
     Dates: start: 20060322, end: 20060606
  3. BARBITURATES [Concomitant]
  4. COCAINE [Concomitant]
  5. OPIATES [Concomitant]

REACTIONS (4)
  - DEPRESSED LEVEL OF CONSCIOUSNESS [None]
  - DRUG ABUSER [None]
  - INTENTIONAL DRUG MISUSE [None]
  - MENTAL STATUS CHANGES [None]
